FAERS Safety Report 5301677-9 (Version None)
Quarter: 2007Q1

REPORT INFORMATION
  Report Type: 
  Country: None (occurrence: None)
  Receive Date: 20070201
  Receipt Date: 20061129
  Transmission Date: 20070707
  Serious: No
  Sender: FDA-Public Use
  Company Number: 2006PV026070

PATIENT
  Age: 77 Year
  Sex: Male
  Weight: 106.5953 kg

DRUGS (1)
  1. BYETTA [Suspect]
     Indication: DIABETES MELLITUS NON-INSULIN-DEPENDENT
     Dosage: 5 MCG;BID;SC
     Route: 058
     Dates: start: 20061120

REACTIONS (4)
  - BLOOD GLUCOSE DECREASED [None]
  - MEDICATION ERROR [None]
  - NAUSEA [None]
  - WEIGHT DECREASED [None]
